FAERS Safety Report 6318841-2 (Version None)
Quarter: 2009Q3

REPORT INFORMATION
  Report Type: 
  Country: None (occurrence: None)
  Receive Date: 20090821
  Receipt Date: 20090812
  Transmission Date: 20100115
  Serious: Yes (Hospitalization)
  Sender: FDA-Public Use
  Company Number: IS-AMGEN-US354190

PATIENT
  Sex: Male
  Weight: 80 kg

DRUGS (3)
  1. ENBREL [Suspect]
     Indication: PSORIASIS
     Route: 065
     Dates: start: 20090407, end: 20090415
  2. METHOTREXATE [Concomitant]
     Indication: PSORIASIS
     Dosage: DOSE 10 MG WEEKLY
     Route: 065
  3. FOLIC ACID [Concomitant]
     Indication: PSORIASIS
     Dosage: DOSE 5 MG 4 DAYS PER WEEK
     Route: 065

REACTIONS (2)
  - BLISTER [None]
  - RASH GENERALISED [None]
